FAERS Safety Report 13056292 (Version 1)
Quarter: 2016Q4

REPORT INFORMATION
  Report Type: Other
  Country: US (occurrence: US)
  Receive Date: 20161222
  Receipt Date: 20161222
  Transmission Date: 20170207
  Serious: Yes (Death, Other)
  Sender: FDA-Public Use
  Company Number: US-B. BRAUN MEDICAL INC.-1061204

PATIENT
  Age: 64 Year
  Sex: Male

DRUGS (12)
  1. CEFTAZIDIME AND DEXTROSE [Suspect]
     Active Substance: CEFTAZIDIME
     Indication: SEPSIS
     Route: 042
  2. RITUXIMAB [Concomitant]
     Active Substance: RITUXIMAB
  3. LACOSAMIDE. [Concomitant]
     Active Substance: LACOSAMIDE
     Route: 042
  4. CEFPODOXIME [Concomitant]
     Active Substance: CEFPODOXIME
  5. COLISTIN [Concomitant]
     Active Substance: COLISTIN
     Route: 042
  6. PHENYTOIN. [Concomitant]
     Active Substance: PHENYTOIN
     Route: 042
  7. LEVETIRACETAM. [Concomitant]
     Active Substance: LEVETIRACETAM
     Route: 042
  8. SULFA-METHOXAZOLE- TRIMETHOPRIM [Concomitant]
  9. FOSPHENYTOIN [Concomitant]
     Active Substance: FOSPHENYTOIN\FOSPHENYTOIN SODIUM
     Route: 042
  10. PROPOFOL. [Concomitant]
     Active Substance: PROPOFOL
  11. MIDAZOLAM [Concomitant]
     Active Substance: MIDAZOLAM\MIDAZOLAM HYDROCHLORIDE
     Route: 042
  12. LINEZOLID. [Concomitant]
     Active Substance: LINEZOLID
     Route: 042

REACTIONS (2)
  - Myoclonus [Unknown]
  - Status epilepticus [Unknown]
